FAERS Safety Report 24115950 (Version 1)
Quarter: 2024Q3

REPORT INFORMATION
  Report Type: Spontaneous
  Country: IT (occurrence: IT)
  Receive Date: 20240722
  Receipt Date: 20240722
  Transmission Date: 20241016
  Serious: Yes (Hospitalization, Other)
  Sender: GLAXOSMITHKLINE
  Company Number: None

PATIENT

DRUGS (2)
  1. LAMICTAL [Suspect]
     Active Substance: LAMOTRIGINE
     Indication: Intentional self-injury
     Dosage: 56 DF
     Route: 048
     Dates: start: 20240710, end: 20240710
  2. GABAPENTIN [Suspect]
     Active Substance: GABAPENTIN
     Indication: Intentional self-injury
     Dosage: 6 DF
     Route: 048
     Dates: start: 20240710, end: 20240710

REACTIONS (3)
  - Drug abuse [Recovering/Resolving]
  - Dissociation [Recovering/Resolving]
  - Agitation [Recovering/Resolving]

NARRATIVE: CASE EVENT DATE: 20240710
